FAERS Safety Report 14171850 (Version 2)
Quarter: 2017Q4

REPORT INFORMATION
  Report Type: Spontaneous
  Country: JP (occurrence: JP)
  Receive Date: 20171108
  Receipt Date: 20171125
  Transmission Date: 20180321
  Serious: Yes (Other)
  Sender: FDA-Public Use
  Company Number: JP-AMGEN-JPNSP2017168620

PATIENT
  Age: 69 Year
  Sex: Male
  Weight: 57.2 kg

DRUGS (10)
  1. PANITUMUMAB [Suspect]
     Active Substance: PANITUMUMAB
     Indication: COLON CANCER
     Dosage: 6 MG/KG, Q2WEEKS
     Route: 041
     Dates: start: 20170831, end: 20170928
  2. DEXAMETHASONE SODIUM PHOSPHATE. [Concomitant]
     Active Substance: DEXAMETHASONE SODIUM PHOSPHATE
     Indication: SUPPORTIVE CARE
     Dosage: 13.2 MG, QD
     Route: 042
     Dates: start: 20170831, end: 20170928
  3. MINOCYCLINE HYDROCHLORIDE. [Concomitant]
     Active Substance: MINOCYCLINE HYDROCHLORIDE
     Indication: SUPPORTIVE CARE
     Dosage: 100 MG, BID
     Route: 048
     Dates: start: 20170831, end: 20170928
  4. FLUOROURACIL. [Suspect]
     Active Substance: FLUOROURACIL
     Indication: COLON CANCER
     Dosage: UNK
     Route: 042
     Dates: start: 20170831, end: 20170928
  5. CALCIUM LEVOFOLINATE [Concomitant]
     Active Substance: LEVOLEUCOVORIN CALCIUM
     Indication: COLON CANCER
     Dosage: 425 MG, Q2WEEKS
     Route: 041
     Dates: start: 20170831, end: 20170928
  6. METOCLOPRAMIDE HYDROCHLORIDE. [Concomitant]
     Active Substance: METOCLOPRAMIDE HYDROCHLORIDE
     Indication: SUPPORTIVE CARE
     Dosage: 10 MG, QD
     Route: 042
     Dates: start: 20170831, end: 20170928
  7. RANITIDINE HYDROCHLORIDE. [Concomitant]
     Active Substance: RANITIDINE HYDROCHLORIDE
     Indication: SUPPORTIVE CARE
     Dosage: 50 MG, QD
     Route: 042
     Dates: start: 20170831, end: 20170928
  8. APREPITANT. [Concomitant]
     Active Substance: APREPITANT
     Indication: SUPPORTIVE CARE
     Dosage: UNK
     Route: 048
     Dates: start: 20170831, end: 20170928
  9. OXALIPLATIN. [Suspect]
     Active Substance: OXALIPLATIN
     Indication: COLON CANCER
     Dosage: 145 MG, Q2WEEKS
     Route: 041
     Dates: start: 20170831, end: 20170928
  10. GRANISETRON HYDROCHLORIDE. [Concomitant]
     Active Substance: GRANISETRON HYDROCHLORIDE
     Indication: SUPPORTIVE CARE
     Dosage: 3 MG, QD
     Route: 042
     Dates: start: 20170831, end: 20170928

REACTIONS (9)
  - Systemic inflammatory response syndrome [Unknown]
  - Hypophagia [Unknown]
  - Depressed level of consciousness [Unknown]
  - General physical health deterioration [Unknown]
  - Stomatitis [Unknown]
  - Nausea [Unknown]
  - Blood magnesium decreased [Unknown]
  - Tachycardia [Unknown]
  - Febrile neutropenia [Recovered/Resolved]

NARRATIVE: CASE EVENT DATE: 20170928
